FAERS Safety Report 8984494 (Version 2)
Quarter: 2013Q1

REPORT INFORMATION
  Report Type: Spontaneous
  Country: US (occurrence: US)
  Receive Date: 20121226
  Receipt Date: 20130123
  Transmission Date: 20140127
  Serious: Yes (Death, Hospitalization)
  Sender: FDA-Public Use
  Company Number: US-SANOFI-AVENTIS-2012SA091974

PATIENT
  Age: 53 Year
  Sex: Male

DRUGS (10)
  1. ZALTRAP [Suspect]
     Indication: COLORECTAL CANCER METASTATIC
     Route: 041
     Dates: start: 20121031, end: 20121031
  2. FOLINIC ACID [Suspect]
     Route: 065
     Dates: start: 20121031, end: 20121031
  3. FLUOROURACIL [Suspect]
     Route: 065
     Dates: start: 20121031
  4. IRINOTECAN [Suspect]
     Route: 065
     Dates: start: 20121031, end: 20121031
  5. ERBITUX [Suspect]
     Route: 065
     Dates: start: 20121127, end: 20121127
  6. LISINOPRIL [Concomitant]
     Indication: HYPERTENSION
  7. FENTANYL [Concomitant]
     Indication: PAIN
  8. LORTAB [Concomitant]
  9. ZOLOFT [Concomitant]
     Indication: DEPRESSION
  10. ANTIEMETICS AND ANTINAUSEANTS [Concomitant]

REACTIONS (4)
  - Disease progression [Fatal]
  - Dehydration [Unknown]
  - Neutropenia [Unknown]
  - Sepsis [Unknown]
